FAERS Safety Report 6186240-2 (Version None)
Quarter: 2009Q2

REPORT INFORMATION
  Report Type: 
  Country: None (occurrence: None)
  Receive Date: 20090507
  Receipt Date: 20090507
  Transmission Date: 20091009
  Serious: Yes (Other)
  Sender: FDA-Public Use
  Company Number: None

PATIENT
  Age: 33 Year
  Sex: Female
  Weight: 62.5964 kg

DRUGS (1)
  1. SOLODYN [Suspect]
     Indication: ACNE
     Dosage: 90 MG TABLET ONCE PER DAY
     Dates: start: 20090201, end: 20090301

REACTIONS (3)
  - ALOPECIA [None]
  - PRURITUS GENERALISED [None]
  - URTICARIA [None]
